FAERS Safety Report 23625683 (Version 1)
Quarter: 2024Q1

REPORT INFORMATION
  Report Type: Spontaneous
  Country: US (occurrence: US)
  Receive Date: 20240313
  Receipt Date: 20240313
  Transmission Date: 20240410
  Serious: No
  Sender: FDA-Public Use
  Company Number: US-TARO PHARMACEUTICALS USA INC.-2023TAR01133

PATIENT

DRUGS (3)
  1. TRETINOIN [Suspect]
     Active Substance: TRETINOIN
     Indication: Scab
     Dosage: UNK, ONCE, ONCE AT NIGHTTIME, ON LEG RINSE IT OFF IN THE MORNING
     Route: 061
     Dates: start: 20230725
  2. TRETINOIN [Suspect]
     Active Substance: TRETINOIN
     Indication: Haemorrhage
  3. TRETINOIN [Suspect]
     Active Substance: TRETINOIN
     Indication: Discharge

REACTIONS (2)
  - Feeling abnormal [Not Recovered/Not Resolved]
  - Product use in unapproved indication [Unknown]
